FAERS Safety Report 16873451 (Version 2)
Quarter: 2020Q1

REPORT INFORMATION
  Report Type: Spontaneous
  Country: US (occurrence: US)
  Receive Date: 20191001
  Receipt Date: 20200302
  Transmission Date: 20200409
  Serious: No
  Sender: FDA-Public Use
  Company Number: US-PFIZER INC-2019421110

PATIENT
  Sex: Female

DRUGS (2)
  1. ADVIL MULTI-SYMPTOM COLD AND FLU [Suspect]
     Active Substance: CHLORPHENIRAMINE MALEATE\IBUPROFEN\PHENYLEPHRINE HYDROCHLORIDE
     Indication: PAIN
     Dosage: UNK
  2. ADVIL MULTI-SYMPTOM COLD AND FLU [Suspect]
     Active Substance: CHLORPHENIRAMINE MALEATE\IBUPROFEN\PHENYLEPHRINE HYDROCHLORIDE
     Indication: HEADACHE
     Dosage: 200 MG, UNK
     Dates: start: 201909, end: 201909

REACTIONS (1)
  - Drug ineffective [Unknown]
